FAERS Safety Report 23250838 (Version 1)
Quarter: 2023Q4

REPORT INFORMATION
  Report Type: Spontaneous
  Country: PT (occurrence: PT)
  Receive Date: 20231201
  Receipt Date: 20231201
  Transmission Date: 20240109
  Serious: Yes (Other)
  Sender: FDA-Public Use
  Company Number: PT-AMGEN-PRTSP2023211023

PATIENT
  Age: 38 Year
  Sex: Female

DRUGS (4)
  1. MVASI [Suspect]
     Active Substance: BEVACIZUMAB-AWWB
     Indication: Adenocarcinoma of colon
     Dosage: 7.5 MILLIGRAM/KILOGRAM, CYCLICAL (ACCORDING TO PROTOCOL; 7.5MG/KG DOSE)
     Route: 040
     Dates: start: 20230509, end: 20230509
  2. OXALIPLATIN [Suspect]
     Active Substance: OXALIPLATIN
     Indication: Adenocarcinoma of colon
     Dosage: 130 MILLIGRAM/SQ. METER, CYCLICAL
     Route: 040
     Dates: start: 20230509, end: 20230509
  3. FLUOROURACIL [Suspect]
     Active Substance: FLUOROURACIL
     Indication: Adenocarcinoma of colon
     Dosage: ACCORDING TO PROTOCOL
     Route: 040
     Dates: start: 20230509, end: 20230509
  4. LEUCOVORIN CALCIUM [Suspect]
     Active Substance: LEUCOVORIN CALCIUM
     Indication: Adenocarcinoma of colon
     Dosage: ACCORDING TO PROTOCOL
     Route: 040
     Dates: start: 20230509, end: 20230509

REACTIONS (1)
  - Rash [Recovered/Resolved]

NARRATIVE: CASE EVENT DATE: 20230509
